FAERS Safety Report 4685449-4 (Version None)
Quarter: 2005Q2

REPORT INFORMATION
  Report Type: 
  Country: None (occurrence: None)
  Receive Date: 20050603
  Receipt Date: 20050516
  Transmission Date: 20051028
  Serious: No
  Sender: FDA-Public Use
  Company Number: FR_050506431

PATIENT
  Age: 37 Year
  Sex: Female

DRUGS (3)
  1. PROZAC [Suspect]
     Dates: end: 20040101
  2. REBETOL [Concomitant]
  3. SUBUTEX [Concomitant]

REACTIONS (7)
  - ABORTION INDUCED [None]
  - CONGENITAL ANOMALY [None]
  - DRUG EXPOSURE DURING PREGNANCY [None]
  - MICROCEPHALY [None]
  - MICROGNATHIA [None]
  - MICROTIA [None]
  - TRISOMY 21 [None]
